FAERS Safety Report 8962752 (Version 1)
Quarter: 2012Q4

REPORT INFORMATION
  Report Type: Report from Study
  Country: JP (occurrence: JP)
  Receive Date: 20121213
  Receipt Date: 20121213
  Transmission Date: 20130627
  Serious: Yes (Hospitalization)
  Sender: FDA-Public Use
  Company Number: JP-PFIZER INC-2012307666

PATIENT
  Age: 23 Year
  Sex: Male

DRUGS (31)
  1. MEDROL [Suspect]
     Indication: PROPHYLAXIS AGAINST RENAL TRANSPLANT REJECTION
     Dosage: 8 mg, 1x/day
     Route: 048
     Dates: start: 20081220
  2. MEDROL [Suspect]
     Dosage: 4 mg, 1x/day
     Route: 048
     Dates: start: 20090522
  3. MYCOPHENOLATE MOFETIL [Suspect]
     Indication: PROPHYLAXIS AGAINST RENAL TRANSPLANT REJECTION
     Dosage: 1000 mg, 2x/day
     Route: 048
     Dates: start: 20081216, end: 20090119
  4. MYCOPHENOLATE MOFETIL [Suspect]
     Dosage: 500 mg, 2x/day
     Route: 048
     Dates: start: 20090120, end: 20090124
  5. MYCOPHENOLATE MOFETIL [Suspect]
     Dosage: 250 mg, 2x/day (DOSE INCREASED)
     Route: 048
     Dates: start: 20090125, end: 20090203
  6. MYCOPHENOLATE MOFETIL [Suspect]
     Dosage: 250 mg, 1x/day
     Route: 048
     Dates: start: 20090204, end: 20090204
  7. MYCOPHENOLATE MOFETIL [Suspect]
     Dosage: 250 mg, 2x/day
     Route: 048
     Dates: start: 20090221, end: 20090316
  8. MYCOPHENOLATE MOFETIL [Suspect]
     Dosage: 250 mg, 2x/day (DOSE INCREASED)
     Route: 048
     Dates: start: 20090508, end: 20090626
  9. MYCOPHENOLATE MOFETIL [Suspect]
     Dosage: 250 mg, 2x/day
     Route: 048
     Dates: start: 20090627, end: 20100218
  10. MYCOPHENOLATE MOFETIL [Suspect]
     Dosage: 500 mg, 2x/day
     Route: 048
     Dates: start: 20100219, end: 20100609
  11. MYCOPHENOLATE MOFETIL [Suspect]
     Dosage: 750 mg, 2x/day
     Route: 048
     Dates: start: 20100609
  12. NEORAL [Suspect]
     Indication: PROPHYLAXIS AGAINST RENAL TRANSPLANT REJECTION
     Dosage: 100 mg, 2x/day
     Route: 048
     Dates: start: 20081221
  13. NEORAL [Suspect]
     Dosage: 75 mg, 2x/day
     Route: 048
     Dates: start: 20080925, end: 20091224
  14. NEORAL [Suspect]
     Dosage: 50 mg, 2x/day
     Route: 048
     Dates: start: 20091225, end: 20100302
  15. NEORAL [Suspect]
     Dosage: 75 mg, 2x/day
     Route: 048
     Dates: start: 20100303, end: 20100408
  16. NEORAL [Suspect]
     Dosage: 100 mg, 2x/day
     Route: 048
     Dates: start: 20100409
  17. NEUER [Concomitant]
     Dosage: 200 mg, 3x/day
     Route: 048
     Dates: start: 20081217
  18. ALLOID G [Concomitant]
     Dosage: 20 ml, 4x/day
     Route: 048
     Dates: start: 20081217
  19. ALUMINIUM HYDROXIDE [Concomitant]
     Dosage: 10 ml, 4x/day
     Route: 048
     Dates: start: 20081217
  20. MAGNESIUM HYDROXIDE [Concomitant]
     Dosage: 10 ml, 4x/day
     Route: 048
     Dates: start: 20081217
  21. FUNGIZONE [Concomitant]
     Dosage: 4 mL (1 mL,4 in 1 D)
     Route: 048
     Dates: start: 20081217
  22. TAKEPRON [Concomitant]
     Dosage: 15 mg, 1x/day
     Route: 048
     Dates: start: 20081218
  23. SULFAMETHOXAZOLE W/TRIMETHOPRIM [Concomitant]
     Dosage: 3 DF, 1x/day
     Route: 048
     Dates: start: 20081223
  24. ZOVIRAX [Concomitant]
     Dosage: 200 mg, 3x/day
     Route: 048
     Dates: start: 20081223
  25. ISODINE [Concomitant]
     Dosage: DOSAGE ADJUSTED; DIVIDED INTO 4 DOSES
     Route: 049
     Dates: start: 20081223
  26. BENAMBAX [Concomitant]
     Dosage: 300 mg, 1x/day
     Route: 055
     Dates: start: 20081224
  27. LIPITOR [Concomitant]
     Dosage: 10 mg, 1x/day
     Route: 048
     Dates: start: 20090107
  28. NADIFLOXACIN [Concomitant]
     Dosage: UNK
     Route: 061
     Dates: start: 20090213
  29. NADIFLOXACIN [Concomitant]
     Dosage: UNK
     Route: 061
     Dates: start: 20090113
  30. URINORM [Concomitant]
     Dosage: 50 mg, 1x/day
     Dates: start: 20090213
  31. BONALON [Concomitant]
     Dosage: 35 mg, weekly
     Route: 048
     Dates: start: 20090313

REACTIONS (2)
  - Cytomegalovirus infection [Recovered/Resolved]
  - Ureteric anastomosis complication [Unknown]
